FAERS Safety Report 26211906 (Version 1)
Quarter: 2025Q4

REPORT INFORMATION
  Report Type: Report from Study
  Country: TR (occurrence: TR)
  Receive Date: 20251230
  Receipt Date: 20251230
  Transmission Date: 20260118
  Serious: Yes (Other)
  Sender: RANBAXY
  Company Number: TR-SUN PHARMACEUTICAL INDUSTRIES INC-2025R1-543942

PATIENT
  Age: 58 Year
  Sex: Female

DRUGS (3)
  1. AMANTADINE [Suspect]
     Active Substance: AMANTADINE
     Indication: Autoimmune encephalopathy
     Dosage: 300 MG/DX
     Route: 065
  2. CLONAZEPAM [Suspect]
     Active Substance: CLONAZEPAM
     Indication: Autoimmune encephalopathy
     Dosage: 1 MG/DX
     Route: 065
  3. MEMANTINE [Suspect]
     Active Substance: MEMANTINE
     Indication: Autoimmune encephalopathy
     Dosage: 10 MG/DX
     Route: 065

REACTIONS (1)
  - Therapy partial responder [Unknown]
